FAERS Safety Report 15890420 (Version 2)
Quarter: 2019Q1

REPORT INFORMATION
  Report Type: Report from Study
  Country: None (occurrence: US)
  Receive Date: 20190130
  Receipt Date: 20190131
  Transmission Date: 20190417
  Serious: Yes (Other)
  Sender: FDA-Public Use
  Company Number: US-ABBVIE-19K-163-2638718-00

PATIENT
  Sex: Female

DRUGS (1)
  1. HUMIRA [Suspect]
     Active Substance: ADALIMUMAB
     Indication: COLITIS ULCERATIVE
     Route: 058

REACTIONS (5)
  - Diabetes mellitus [Not Recovered/Not Resolved]
  - Impaired gastric emptying [Recovering/Resolving]
  - Pneumonia [Recovered/Resolved]
  - Intensive care unit delirium [Recovering/Resolving]
  - Acute respiratory distress syndrome [Unknown]
